FAERS Safety Report 14253960 (Version 6)
Quarter: 2018Q2

REPORT INFORMATION
  Report Type: Spontaneous
  Country: IN (occurrence: IN)
  Receive Date: 20171205
  Receipt Date: 20180621
  Transmission Date: 20180711
  Serious: Yes (Other)
  Sender: FDA-Public Use
  Company Number: IN-PFIZER INC-2017519387

PATIENT
  Age: 74 Year
  Sex: Female
  Weight: 57 kg

DRUGS (13)
  1. ZOLEDRONIC ACID [Concomitant]
     Active Substance: ZOLEDRONIC ACID
     Dosage: UNK (4MG IN 100ML NS OVER 20-30 MIN EVERY MONTHLY)
  2. AUTRIN [Concomitant]
     Dosage: 1 DF, 2X/DAY
  3. LETROZOLE. [Concomitant]
     Active Substance: LETROZOLE
     Dosage: 2.5 MG, 1X/DAY
     Dates: start: 20170507
  4. ALPRAZOLAM. [Concomitant]
     Active Substance: ALPRAZOLAM
     Dosage: 0.5 MG, 1X/DAY (NIGHT)
  5. FOLVITE [Concomitant]
     Active Substance: FOLIC ACID
     Dosage: 5 MG, 1X/DAY (X1MONTH)
  6. FERSOLATE [Concomitant]
     Dosage: UNK UNK, 1X/DAY
  7. PALBACE [Suspect]
     Active Substance: PALBOCICLIB
     Indication: BREAST CANCER METASTATIC
     Dosage: 125 MG, CYCLIC (DAILY FOR 21 DAYS)
     Route: 048
     Dates: start: 20170507
  8. PALBACE [Suspect]
     Active Substance: PALBOCICLIB
     Dosage: 100 MG, 1X/DAY (WITH FOODX 21 DAYS)
  9. GEMCAL [Concomitant]
     Active Substance: CALCIUM
     Dosage: UNK, 2X/DAY
  10. OMEPRAZOLE. [Concomitant]
     Active Substance: OMEPRAZOLE
     Dosage: UNK
  11. NEUROBION FORTE /00358301/ [Concomitant]
     Dosage: UNK, 1X/DAY
  12. PAN D [Concomitant]
     Dosage: UNK
  13. FOLIC ACID. [Concomitant]
     Active Substance: FOLIC ACID
     Dosage: 5 MG, 1X/DAY (X1 MONTH)

REACTIONS (16)
  - Fatigue [Recovering/Resolving]
  - Musculoskeletal pain [Not Recovered/Not Resolved]
  - Chest discomfort [Unknown]
  - Spinal pain [Not Recovered/Not Resolved]
  - Neoplasm progression [Unknown]
  - Blood pressure increased [Unknown]
  - Dyspnoea [Recovering/Resolving]
  - Neck pain [Not Recovered/Not Resolved]
  - Neutropenia [Unknown]
  - Asthenia [Recovering/Resolving]
  - Bone pain [Unknown]
  - Weight increased [Unknown]
  - Chest pain [Unknown]
  - Cough [Unknown]
  - Ageusia [Unknown]
  - Pain [Unknown]

NARRATIVE: CASE EVENT DATE: 20170522
